FAERS Safety Report 5599009-4 (Version None)
Quarter: 2008Q1

REPORT INFORMATION
  Report Type: 
  Country: None (occurrence: None)
  Receive Date: 20080122
  Receipt Date: 20080116
  Transmission Date: 20080703
  Serious: Yes (Hospitalization)
  Sender: FDA-Public Use
  Company Number: GB-BOEHRINGER INGELHEIM PHARMACEUTICALS, INC.-2007-DE-06579GD

PATIENT
  Age: 69 Year
  Sex: Male

DRUGS (10)
  1. TIOTROPIUM-BROMIDE [Suspect]
     Indication: CHRONIC OBSTRUCTIVE PULMONARY DISEASE
     Route: 055
     Dates: start: 20030809
  2. AZOPT [Concomitant]
  3. AMARYL [Concomitant]
  4. DIABETASE [Concomitant]
  5. ENALAPRIL RATIOPHARM [Concomitant]
  6. NIFEDIPINE [Concomitant]
  7. FURO 40 [Concomitant]
  8. ASS 100 HEXAL [Concomitant]
  9. LOVASTATIN [Concomitant]
  10. BISOPROLOL FUMARATE [Concomitant]

REACTIONS (2)
  - CORONARY ARTERY DISEASE [None]
  - DIABETES MELLITUS [None]
